FAERS Safety Report 11288207 (Version 2)
Quarter: 2016Q1

REPORT INFORMATION
  Report Type: Spontaneous
  Country: US (occurrence: US)
  Receive Date: 20150721
  Receipt Date: 20160125
  Transmission Date: 20160525
  Serious: No
  Sender: FDA-Public Use
  Company Number: US-UNITED THERAPEUTICS-UNT-2015-001861

PATIENT
  Age: 56 Year
  Sex: Male
  Weight: 88.44 kg

DRUGS (11)
  1. REMODULIN [Suspect]
     Active Substance: TREPROSTINIL
     Dosage: 0.04 ?G/KG/MIN,CONTINUING
     Route: 041
  2. REMODULIN [Suspect]
     Active Substance: TREPROSTINIL
     Dosage: 0.035 ?G/KG/MIN,CONTINUING
     Route: 041
  3. REMODULIN [Suspect]
     Active Substance: TREPROSTINIL
     Indication: PULMONARY ARTERIAL HYPERTENSION
     Dosage: 0.04 ?G/KG/MIN,CONTINUING
     Route: 041
     Dates: start: 20150209
  4. REMODULIN [Suspect]
     Active Substance: TREPROSTINIL
     Dosage: 0.039 ?G/KG/MIN, CONTINUING
     Route: 041
     Dates: start: 20150213
  5. REMODULIN [Suspect]
     Active Substance: TREPROSTINIL
     Dosage: 0.038 ?G/KG/MIN, CONTINUING
     Route: 041
  6. REMODULIN [Suspect]
     Active Substance: TREPROSTINIL
     Dosage: 0.0455 ?G/KG/MIN,CONTINUING
     Route: 041
  7. WARFARIN [Concomitant]
     Active Substance: WARFARIN
     Indication: PRODUCT USED FOR UNKNOWN INDICATION
  8. LASIX [Concomitant]
     Active Substance: FUROSEMIDE
     Indication: PRODUCT USED FOR UNKNOWN INDICATION
  9. REMODULIN [Suspect]
     Active Substance: TREPROSTINIL
     Dosage: 0.034 ?G/KG/MIN, CONTINUING
     Route: 041
     Dates: start: 20150214
  10. REMODULIN [Suspect]
     Active Substance: TREPROSTINIL
     Dosage: 0.035 ?G/KG/MIN, CONTINUING
     Route: 041
  11. COUMADIN [Concomitant]
     Active Substance: WARFARIN SODIUM
     Indication: PRODUCT USED FOR UNKNOWN INDICATION

REACTIONS (17)
  - Diarrhoea [Unknown]
  - Decreased appetite [Unknown]
  - Abdominal distension [Recovering/Resolving]
  - Dysgeusia [Unknown]
  - Thrombosis in device [Recovered/Resolved]
  - Fall [Unknown]
  - Drug dose omission [Recovered/Resolved]
  - Asthenia [Unknown]
  - Hypotension [Unknown]
  - Vomiting [Unknown]
  - Urine output decreased [Unknown]
  - Weight decreased [Unknown]
  - Blood glucose decreased [Unknown]
  - Pain in extremity [Unknown]
  - Nausea [Unknown]
  - Device dislocation [Recovered/Resolved]
  - Oedema peripheral [Unknown]

NARRATIVE: CASE EVENT DATE: 2015
